FAERS Safety Report 5162328-X (Version None)
Quarter: 2006Q4

REPORT INFORMATION
  Report Type: 
  Country: None (occurrence: None)
  Receive Date: 20061130
  Receipt Date: 20061120
  Transmission Date: 20070319
  Serious: Yes (Hospitalization)
  Sender: FDA-Public Use
  Company Number: US-AMGEN-US200884

PATIENT
  Sex: Female

DRUGS (10)
  1. NEULASTA [Suspect]
     Indication: CHEMOTHERAPY
     Route: 058
     Dates: start: 20051101
  2. NEUPOGEN [Suspect]
     Indication: CHEMOTHERAPY
     Route: 065
     Dates: start: 20060801
  3. ARANESP [Suspect]
     Indication: ANAEMIA OF MALIGNANT DISEASE
     Route: 065
  4. OVRAL [Concomitant]
     Route: 065
  5. ACIPHEX [Concomitant]
     Route: 065
  6. SEPTRA [Concomitant]
     Route: 065
  7. COLACE [Concomitant]
     Route: 065
  8. VINCRISTINE [Concomitant]
     Route: 065
  9. DACTINOMYCIN [Concomitant]
     Route: 065
  10. CYTOXAN [Concomitant]
     Route: 065

REACTIONS (8)
  - DYSPNOEA [None]
  - HYPERSENSITIVITY [None]
  - HYPOTENSION [None]
  - LOSS OF CONSCIOUSNESS [None]
  - NAUSEA [None]
  - OCULAR HYPERAEMIA [None]
  - PALPITATIONS [None]
  - VOMITING [None]
